FAERS Safety Report 20809449 (Version 9)
Quarter: 2024Q4

REPORT INFORMATION
  Report Type: Spontaneous
  Country: US (occurrence: US)
  Receive Date: 20220510
  Receipt Date: 20241217
  Transmission Date: 20250115
  Serious: Yes (Other)
  Sender: PFIZER
  Company Number: US-PFIZER INC-202200055747

PATIENT
  Age: 67 Year
  Sex: Female

DRUGS (4)
  1. ESTRING [Suspect]
     Active Substance: ESTRADIOL
     Dosage: 7.5 UG, DAILY (7.5 MCG/24 HOUR)
  2. ESTRING [Suspect]
     Active Substance: ESTRADIOL
     Dosage: 7.5 MCG/24 HOUR
     Route: 067
  3. PREMARIN [Suspect]
     Active Substance: ESTROGENS, CONJUGATED
     Dosage: 0.5 G, USE QHS X 2 WEEKS THEN 1-2 TIMES WEEKLY
     Route: 067
  4. PREMARIN [Suspect]
     Active Substance: ESTROGENS, CONJUGATED
     Dosage: 0.5 G, 2X/WEEK
     Route: 067

REACTIONS (10)
  - Neoplasm malignant [Unknown]
  - Hysterectomy [Unknown]
  - Drug ineffective [Unknown]
  - Product dispensing error [Unknown]
  - Acne [Unknown]
  - Emotional distress [Unknown]
  - Urinary tract disorder [Unknown]
  - Vulvovaginal dryness [Unknown]
  - Cognitive disorder [Unknown]
  - Condition aggravated [Unknown]
